FAERS Safety Report 23122922 (Version 1)
Quarter: 2023Q4

REPORT INFORMATION
  Report Type: Other
  Country: PK (occurrence: None)
  Receive Date: 20231030
  Receipt Date: 20231030
  Transmission Date: 20240109
  Serious: Yes (Other)
  Sender: FDA-Public Use
  Company Number: PK-ROCHE-3445404

PATIENT

DRUGS (2)
  1. RITUXIMAB [Suspect]
     Active Substance: RITUXIMAB
     Indication: Rheumatoid arthritis
     Route: 065
  2. TOCILIZUMAB [Suspect]
     Active Substance: TOCILIZUMAB
     Indication: Rheumatoid arthritis
     Route: 058

REACTIONS (13)
  - Cerebrovascular accident [Unknown]
  - Myocardial infarction [Unknown]
  - Anaphylactic reaction [Unknown]
  - Gastrointestinal perforation [Unknown]
  - Hypersensitivity [Unknown]
  - Injection site reaction [Unknown]
  - Haemodynamic test abnormal [Unknown]
  - Hepatic enzyme increased [Unknown]
  - Leukopenia [Unknown]
  - Hypertransaminasaemia [Unknown]
  - Upper respiratory tract infection [Unknown]
  - Lower respiratory tract infection [Unknown]
  - Skin infection [Unknown]
